FAERS Safety Report 9773522 (Version 2)
Quarter: 2014Q1

REPORT INFORMATION
  Report Type: Spontaneous
  Country: US (occurrence: US)
  Receive Date: 20131219
  Receipt Date: 20140103
  Transmission Date: 20141002
  Serious: No
  Sender: FDA-Public Use
  Company Number: US-009507513-1312USA002498

PATIENT
  Age: 47 Year
  Sex: Female

DRUGS (3)
  1. NASONEX [Suspect]
     Indication: SINUS DISORDER
     Dosage: NASAL SPRAY, PRN
     Route: 055
     Dates: start: 201112
  2. LOPRESSOR [Concomitant]
  3. LISINOPRIL [Concomitant]
     Route: 048

REACTIONS (3)
  - Nasal congestion [Not Recovered/Not Resolved]
  - Headache [Not Recovered/Not Resolved]
  - Drug dose omission [Unknown]
